FAERS Safety Report 4886112-7 (Version None)
Quarter: 2006Q1

REPORT INFORMATION
  Report Type: 
  Country: None (occurrence: None)
  Receive Date: 20060117
  Receipt Date: 20060102
  Transmission Date: 20060701
  Serious: Yes (Other)
  Sender: FDA-Public Use
  Company Number: 2005150152

PATIENT
  Age: 30 Year
  Sex: Male
  Weight: 75 kg

DRUGS (8)
  1. GENOTROPIN [Suspect]
     Indication: HYPOPITUITARISM
     Dosage: 0.5 MG SUBCUTANEOUS
     Route: 058
     Dates: start: 19990223, end: 20010501
  2. THYROXINE (LEVOTHYROXINE) [Concomitant]
  3. HYDROCORTISONE (HYDROCORITSONE) [Concomitant]
  4. ATORVASTATIN CALCIUM [Concomitant]
  5. PHENYTOIN SODIUM [Concomitant]
  6. CARBAMAZEPINE [Concomitant]
  7. TESTOSTERONE (TESOSTERONE) [Concomitant]
  8. DESMOPRESSIN ACETATE [Concomitant]

REACTIONS (5)
  - BLOOD CHLORIDE INCREASED [None]
  - BLOOD PHOSPHORUS INCREASED [None]
  - CRANIOPHARYNGIOMA [None]
  - GAMMA-GLUTAMYLTRANSFERASE INCREASED [None]
  - NEOPLASM RECURRENCE [None]
